FAERS Safety Report 6254491-4 (Version None)
Quarter: 2009Q3

REPORT INFORMATION
  Report Type: 
  Country: None (occurrence: None)
  Receive Date: 20090702
  Receipt Date: 20090625
  Transmission Date: 20100115
  Serious: Yes (Other)
  Sender: FDA-Public Use
  Company Number: US-TYCO HEALTHCARE/MALLINCKRODT-T200901295

PATIENT
  Sex: Female

DRUGS (1)
  1. SODIUM IODIDE I 131 [Suspect]
     Indication: RADIOACTIVE IODINE THERAPY

REACTIONS (1)
  - SIALOADENITIS [None]
